FAERS Safety Report 9408145 (Version 2)
Quarter: 2013Q3

REPORT INFORMATION
  Report Type: Spontaneous
  Country: US (occurrence: US)
  Receive Date: 20130718
  Receipt Date: 20130812
  Transmission Date: 20140515
  Serious: Yes (Other)
  Sender: FDA-Public Use
  Company Number: US-PFIZER INC-2013209283

PATIENT
  Age: 61 Year
  Sex: Female
  Weight: 55.78 kg

DRUGS (3)
  1. LYRICA [Suspect]
     Indication: BACK PAIN
     Dosage: 75 MG, 1X/DAY
     Route: 048
     Dates: start: 20130709, end: 20130711
  2. PERCOCET [Concomitant]
     Indication: BACK PAIN
     Dosage: 10/325MG, 4X/DAY
     Route: 048
  3. ULTRAM [Concomitant]
     Indication: BACK PAIN
     Dosage: 50 MG, AS NEEDED

REACTIONS (16)
  - Off label use [Unknown]
  - Suicidal ideation [Unknown]
  - Hypoacusis [Unknown]
  - Confusional state [Recovering/Resolving]
  - Dyskinesia [Recovering/Resolving]
  - Disturbance in attention [Not Recovered/Not Resolved]
  - Asthenia [Recovering/Resolving]
  - Diarrhoea [Not Recovered/Not Resolved]
  - Dysarthria [Recovering/Resolving]
  - Feeling abnormal [Recovering/Resolving]
  - Middle insomnia [Recovering/Resolving]
  - Abnormal dreams [Recovering/Resolving]
  - Insomnia [Recovering/Resolving]
  - Movement disorder [Recovering/Resolving]
  - Sedation [Unknown]
  - Dizziness [Unknown]
